FAERS Safety Report 8379785-8 (Version None)
Quarter: 2012Q2

REPORT INFORMATION
  Report Type: 
  Country: None (occurrence: None)
  Receive Date: 20120523
  Receipt Date: 20120515
  Transmission Date: 20120825
  Serious: Yes (Life-Threatening, Hospitalization, Other)
  Sender: FDA-Public Use
  Company Number: DE-UCBSA-050687

PATIENT
  Sex: Female

DRUGS (24)
  1. CIMZIA [Suspect]
     Indication: RHEUMATOID ARTHRITIS
     Route: 058
     Dates: start: 20110110, end: 20110317
  2. LEVOFLOXACIN [Concomitant]
     Dosage: 500 MG
     Route: 048
     Dates: start: 20110503, end: 20110509
  3. SULFASALAZINE [Concomitant]
  4. CHLOROQUINE PHOSPHATE [Concomitant]
  5. FRAXIPARIN [Concomitant]
     Dosage: 0.6 ML
     Dates: start: 20060201
  6. LEVOTHYROXINE SODIUM [Concomitant]
     Dosage: 100 MCG
     Dates: start: 20110501
  7. KINERET [Suspect]
     Dosage: 100 MG
     Dates: start: 20110329, end: 20110509
  8. VOLTAREN [Concomitant]
     Dosage: 25 MM 1X
     Dates: start: 19900101
  9. AMPHO-MONORAL [Concomitant]
     Dosage: 4 X DAILY
     Dates: start: 20110501, end: 20110509
  10. LEVOTHYROXINE SODIUM [Concomitant]
     Dosage: 50 MCG
     Dates: start: 20060201
  11. METHYLPREDNISOLONE [Concomitant]
     Dosage: DAILY DOSE: 8 MG
     Dates: start: 19800101
  12. OMEPRAZOLE [Concomitant]
     Dosage: 40 MG
     Dates: start: 20050501
  13. ARAVA [Concomitant]
  14. REMICADE [Concomitant]
  15. HYDROXYCHLOROQUINE SULFATE [Concomitant]
  16. BISOPROLOL FUMARATE [Concomitant]
     Indication: HYPERTENSION
     Dosage: 10 MG
     Dates: start: 20060201
  17. TAMBOCOR [Concomitant]
     Dosage: DAILY DOSE: 150 MG
     Dates: start: 20060201
  18. CYCLOSPORINE [Concomitant]
  19. KINERET [Suspect]
     Dates: end: 20110108
  20. CALCIDOC SOFT [Concomitant]
     Dates: start: 20030101
  21. GOLD [Concomitant]
  22. LEVOFLOXACIN [Concomitant]
     Dosage: 250 MG
     Route: 042
     Dates: start: 20110501
  23. METHOTREXATE [Concomitant]
  24. AZATHIOPRINE [Concomitant]

REACTIONS (3)
  - CARDIAC ARREST [None]
  - LEUKOPENIA [None]
  - MYOCARDIAL INFARCTION [None]
